FAERS Safety Report 8232304-9 (Version None)
Quarter: 2012Q1

REPORT INFORMATION
  Report Type: 
  Country: None (occurrence: None)
  Receive Date: 20120323
  Receipt Date: 20120313
  Transmission Date: 20120608
  Serious: No
  Sender: FDA-Public Use
  Company Number: US-ELI_LILLY_AND_COMPANY-US201201005558

PATIENT
  Sex: Female
  Weight: 84.807 kg

DRUGS (2)
  1. COUMADIN [Concomitant]
     Dosage: 1 MG, UNK
  2. ADCIRCA [Suspect]
     Indication: PULMONARY HYPERTENSION
     Dosage: 40 MG, QD
     Route: 048
     Dates: start: 20111222

REACTIONS (7)
  - ABDOMINAL DISCOMFORT [None]
  - MENSTRUAL DISORDER [None]
  - BACK PAIN [None]
  - TINNITUS [None]
  - DECREASED APPETITE [None]
  - VISION BLURRED [None]
  - DIZZINESS [None]
